FAERS Safety Report 4810898-0 (Version None)
Quarter: 2005Q4

REPORT INFORMATION
  Report Type: 
  Country: None (occurrence: None)
  Receive Date: 20051025
  Receipt Date: 20051012
  Transmission Date: 20060501
  Serious: Yes (Other)
  Sender: FDA-Public Use
  Company Number: 2005-133600-NL

PATIENT
  Age: 22 Year
  Sex: Female
  Weight: 56.7 kg

DRUGS (2)
  1. NUVARING [Suspect]
     Indication: CONTRACEPTION
     Dosage: VAGINAL, 3 WEEKS IN , 1 WEEK OUT
     Dates: start: 20050201, end: 20050928
  2. NUVARING [Suspect]
     Indication: MENSTRUATION IRREGULAR
     Dosage: VAGINAL, 3 WEEKS IN , 1 WEEK OUT
     Dates: start: 20050201, end: 20050928

REACTIONS (8)
  - ABDOMINAL PAIN LOWER [None]
  - ANORECTAL DISORDER [None]
  - FALL [None]
  - PELVIC MASS [None]
  - SCAR [None]
  - SWELLING [None]
  - VAGINAL DISCHARGE [None]
  - VULVOVAGINAL DISCOMFORT [None]
